FAERS Safety Report 5554629-8 (Version None)
Quarter: 2007Q4

REPORT INFORMATION
  Report Type: 
  Country: None (occurrence: None)
  Receive Date: 20071213
  Receipt Date: 20070731
  Transmission Date: 20080405
  Serious: No
  Sender: FDA-Public Use
  Company Number: US-AMGEN-KDL236858

PATIENT
  Sex: Female

DRUGS (3)
  1. ENBREL [Suspect]
     Indication: PSORIATIC ARTHROPATHY
     Route: 058
     Dates: start: 20070610
  2. ENBREL [Suspect]
     Indication: PSORIASIS
  3. LEFLUNOMIDE [Concomitant]
     Route: 048
     Dates: start: 20050101

REACTIONS (4)
  - INJECTION SITE ERYTHEMA [None]
  - INJECTION SITE IRRITATION [None]
  - PHARYNGOLARYNGEAL PAIN [None]
  - PYREXIA [None]
